FAERS Safety Report 8580458 (Version 3)
Quarter: 2012Q4

REPORT INFORMATION
  Report Type: 
  Country: US (occurrence: US)
  Receive Date: 20120525
  Receipt Date: 20121009
  Transmission Date: 20130627
  Serious: Yes (Death, Hospitalization)
  Sender: FDA-Public Use
  Company Number: US-BRISTOL-MYERS SQUIBB COMPANY-16595225

PATIENT
  Age: 63 Year
  Sex: Male
  Weight: 87 kg

DRUGS (5)
  1. YERVOY [Suspect]
     Indication: METASTATIC OCULAR MELANOMA
     Dosage: Second dose:2Feb12
     Dates: start: 201201, end: 20120221
  2. LOVENOX [Concomitant]
     Indication: DEEP VEIN THROMBOSIS
     Route: 058
  3. CANASA [Concomitant]
  4. OSCAL [Concomitant]
  5. PRILOSEC [Concomitant]

REACTIONS (5)
  - Septic shock [Fatal]
  - Megacolon [Fatal]
  - Malignant neoplasm progression [Fatal]
  - Clostridium difficile colitis [Unknown]
  - Colitis [Unknown]
